FAERS Safety Report 6759268-9 (Version None)
Quarter: 2010Q2

REPORT INFORMATION
  Report Type: 
  Country: None (occurrence: None)
  Receive Date: 20100607
  Receipt Date: 20100602
  Transmission Date: 20101027
  Serious: Yes (Hospitalization, Other)
  Sender: FDA-Public Use
  Company Number: CN-PFIZER INC-2010064465

PATIENT
  Age: 17 Year

DRUGS (1)
  1. MEDROL [Suspect]
     Indication: COLITIS ULCERATIVE
     Dosage: 40 MG, 1X/DAY
     Route: 048

REACTIONS (1)
  - WHITE BLOOD CELL COUNT INCREASED [None]
